FAERS Safety Report 4576358-X (Version None)
Quarter: 2005Q1

REPORT INFORMATION
  Report Type: 
  Country: None (occurrence: None)
  Receive Date: 20050207
  Receipt Date: 20050121
  Transmission Date: 20050727
  Serious: No
  Sender: FDA-Public Use
  Company Number: 9996

PATIENT

DRUGS (8)
  1. ETOPOSIDE [Suspect]
     Indication: MULTIPLE MYELOMA
     Dosage: 40 MG/M2
  2. METHYLPREDNISOLONE [Suspect]
     Indication: MULTIPLE MYELOMA
     Dosage: 500 MG
  3. CYTARABINE [Suspect]
     Indication: MULTIPLE MYELOMA
     Dosage: 2000 MG/M2 ONCE
  4. CISPLATIN [Suspect]
     Indication: MULTIPLE MYELOMA
     Dosage: 25 MG/M2, IV
     Route: 042
  5. GRANULOCYTE [Concomitant]
  6. GRANISETRON [Concomitant]
  7. RANITIDINE [Concomitant]
  8. PREDNISOLONE [Concomitant]

REACTIONS (2)
  - PNEUMONIA [None]
  - RENAL FAILURE ACUTE [None]
